FAERS Safety Report 8175897-2 (Version None)
Quarter: 2012Q1

REPORT INFORMATION
  Report Type: 
  Country: None (occurrence: None)
  Receive Date: 20120301
  Receipt Date: 20120222
  Transmission Date: 20120608
  Serious: Yes (Hospitalization)
  Sender: FDA-Public Use
  Company Number: US-US-EMD SERONO, INC.-7115036

PATIENT
  Sex: Female
  Weight: 72 kg

DRUGS (5)
  1. FLECAINIDE ACETATE [Concomitant]
  2. VERAPAMIL [Concomitant]
     Indication: HYPERTENSION
  3. LIPITOR [Concomitant]
     Indication: DYSLIPIDAEMIA
  4. REBIF [Suspect]
     Indication: PRODUCT USED FOR UNKNOWN INDICATION
     Route: 058
     Dates: start: 20081006
  5. XANAX [Concomitant]
     Indication: ANXIETY
     Route: 048

REACTIONS (2)
  - FALL [None]
  - NERVE COMPRESSION [None]
